FAERS Safety Report 6609068-5 (Version None)
Quarter: 2010Q1

REPORT INFORMATION
  Report Type: 
  Country: None (occurrence: None)
  Receive Date: 20100225
  Receipt Date: 20100225
  Transmission Date: 20100710
  Serious: Yes (Life-Threatening, Hospitalization, Other)
  Sender: FDA-Public Use
  Company Number: None

PATIENT
  Age: 48 Year
  Sex: Male
  Weight: 102.0593 kg

DRUGS (3)
  1. DILANTIN [Suspect]
     Indication: CONVULSION
     Dosage: FROM 400MG DAY UP TO 800MQ DAY ONCE DAILY PO
     Route: 048
     Dates: start: 19850104, end: 20080908
  2. DILANTIN [Suspect]
     Indication: CYSTITIS
     Dosage: FROM 400MG DAY UP TO 800MQ DAY ONCE DAILY PO
     Route: 048
     Dates: start: 19850104, end: 20080908
  3. LEVAQUIN [Suspect]
     Indication: KIDNEY INFECTION
     Dosage: 100MG TWICE DAILY PO
     Route: 048
     Dates: start: 19960315, end: 20090105

REACTIONS (10)
  - BLADDER DISORDER [None]
  - CHRONIC OBSTRUCTIVE PULMONARY DISEASE [None]
  - DRUG INEFFECTIVE [None]
  - FURUNCLE [None]
  - IMPAIRED DRIVING ABILITY [None]
  - NEPHROLITHIASIS [None]
  - RENAL FAILURE [None]
  - ROAD TRAFFIC ACCIDENT [None]
  - SCAR [None]
  - VISUAL IMPAIRMENT [None]
